FAERS Safety Report 15732020 (Version 2)
Quarter: 2019Q2

REPORT INFORMATION
  Report Type: Spontaneous
  Country: FR (occurrence: FR)
  Receive Date: 20181217
  Receipt Date: 20190412
  Transmission Date: 20190711
  Serious: Yes (Congenital Anomaly)
  Sender: FDA-Public Use
  Company Number: FR-LUNDBECK-DKLU2058145

PATIENT
  Sex: Female

DRUGS (3)
  1. DEPAKENE CHRONO [Suspect]
     Active Substance: VALPROATE SODIUM
     Indication: PRODUCT USED FOR UNKNOWN INDICATION
     Route: 064
     Dates: start: 20031123, end: 20040619
  2. DEPAKENE CHRONO [Suspect]
     Active Substance: VALPROATE SODIUM
     Route: 064
     Dates: start: 20040619, end: 20040825
  3. URBANYL [Suspect]
     Active Substance: CLOBAZAM
     Indication: PRODUCT USED FOR UNKNOWN INDICATION
     Route: 064
     Dates: start: 20040619

REACTIONS (23)
  - Ear infection [Unknown]
  - Developmental delay [Unknown]
  - Amyotrophy [Unknown]
  - Learning disorder [Unknown]
  - Visuospatial deficit [Unknown]
  - Social problem [Unknown]
  - Ocular discomfort [Unknown]
  - Astigmatism [Unknown]
  - Foot deformity [Unknown]
  - Dysmorphism [Unknown]
  - Hip deformity [Unknown]
  - Self esteem decreased [Unknown]
  - Joint laxity [Unknown]
  - Knee deformity [Unknown]
  - Language disorder [Unknown]
  - Motor dysfunction [Unknown]
  - Emotional disorder [Unknown]
  - Nasopharyngitis [Recovered/Resolved]
  - Speech disorder [Unknown]
  - Muscular weakness [Unknown]
  - Clumsiness [Unknown]
  - Gait disturbance [Recovered/Resolved]
  - Foetal exposure during pregnancy [Unknown]
